FAERS Safety Report 6297285-6 (Version None)
Quarter: 2009Q3

REPORT INFORMATION
  Report Type: 
  Country: None (occurrence: None)
  Receive Date: 20090805
  Receipt Date: 20090729
  Transmission Date: 20100115
  Serious: Yes (Hospitalization)
  Sender: FDA-Public Use
  Company Number: IT-PFIZER INC-2009243351

PATIENT
  Age: 68 Year

DRUGS (7)
  1. CARDURA [Suspect]
     Indication: HYPERTENSION
     Dosage: 1 UNIT TOTAL
     Route: 048
     Dates: start: 20090612, end: 20090612
  2. ZANEDIP [Concomitant]
     Indication: HYPERTENSION
     Dosage: 1 UNIT TOTAL
     Route: 048
     Dates: start: 20080601, end: 20090612
  3. ACETYLSALICYLATE LYSINE [Concomitant]
     Indication: PROPHYLAXIS
     Dosage: 1 UNIT
     Route: 048
     Dates: start: 20080601, end: 20090612
  4. TAVANIC [Concomitant]
     Dosage: 750 MG, 1X/DAY
     Dates: start: 20090607, end: 20090612
  5. SELEPARINA [Concomitant]
     Dosage: 0.4 ML, UNK
     Route: 058
     Dates: start: 20090603, end: 20090606
  6. TRAMADOL [Concomitant]
     Dosage: 200 MG, UNK
     Route: 042
     Dates: start: 20090603, end: 20090607
  7. KETOPROFEN [Concomitant]
     Dosage: 200 MG, UNK
     Route: 042
     Dates: start: 20090603, end: 20090607

REACTIONS (3)
  - DRUG ADMINISTRATION ERROR [None]
  - HYPOTENSION [None]
  - SYNCOPE [None]
